FAERS Safety Report 9303870 (Version 3)
Quarter: 2014Q1

REPORT INFORMATION
  Report Type: Spontaneous
  Country: US (occurrence: US)
  Receive Date: 20130522
  Receipt Date: 20140120
  Transmission Date: 20141002
  Serious: No
  Sender: FDA-Public Use
  Company Number: US-ASTRAZENECA-2011SE18203

PATIENT
  Age: 51 Year
  Sex: Male
  Weight: 108.9 kg

DRUGS (6)
  1. SEROQUEL [Suspect]
     Indication: BIPOLAR DISORDER
     Route: 048
     Dates: start: 2004
  2. AMBIEN [Concomitant]
  3. EFFEXOR [Concomitant]
  4. KLONOPIN [Concomitant]
  5. WATER PILL [Concomitant]
     Dosage: BIWK
  6. MEDICATION FOR HEARTBURN [Concomitant]
     Indication: DYSPEPSIA

REACTIONS (5)
  - Agitation [Unknown]
  - Nervousness [Unknown]
  - Hypoaesthesia oral [Unknown]
  - Paraesthesia oral [Unknown]
  - Intentional drug misuse [Unknown]
